FAERS Safety Report 5671061-7 (Version None)
Quarter: 2008Q1

REPORT INFORMATION
  Report Type: 
  Country: None (occurrence: None)
  Receive Date: 20080318
  Receipt Date: 20080304
  Transmission Date: 20080703
  Serious: Yes (Hospitalization)
  Sender: FDA-Public Use
  Company Number: US-ELI_LILLY_AND_COMPANY-US200803000573

PATIENT
  Sex: Female

DRUGS (3)
  1. FORTEO [Suspect]
     Indication: OSTEOPOROSIS
     Dosage: UNK, UNK
     Dates: start: 20070101
  2. FORTEO [Suspect]
     Dates: end: 20080101
  3. MOBIC [Concomitant]
     Indication: ARTHRITIS
     Dates: end: 20080201

REACTIONS (2)
  - HAEMATEMESIS [None]
  - ULCER [None]
